FAERS Safety Report 4765103-0 (Version None)
Quarter: 2005Q3

REPORT INFORMATION
  Report Type: 
  Country: None (occurrence: None)
  Receive Date: 20050907
  Receipt Date: 20050822
  Transmission Date: 20060218
  Serious: Yes (Hospitalization)
  Sender: FDA-Public Use
  Company Number: 204675

PATIENT
  Age: 36 Year
  Sex: Female
  Weight: 96.1626 kg

DRUGS (13)
  1. AVONEX [Suspect]
     Indication: MULTIPLE SCLEROSIS
     Dosage: 30 UG; QW; IM
     Route: 030
     Dates: start: 20010201, end: 20030101
  2. AVONEX [Suspect]
     Indication: MULTIPLE SCLEROSIS
     Dosage: 30 UG; QW; IM
     Route: 030
     Dates: start: 20030101, end: 20031101
  3. AVONEX [Suspect]
     Indication: MULTIPLE SCLEROSIS
     Dosage: 30 UG; QW; IM
     Route: 030
     Dates: start: 20040101, end: 20040801
  4. AVONEX [Suspect]
     Indication: MULTIPLE SCLEROSIS
     Dosage: 30 UG; QW; IM
     Route: 030
     Dates: start: 20050701
  5. ULTRAM [Concomitant]
  6. MOTRIN [Concomitant]
  7. COPAXONE [Concomitant]
  8. WELLBUTRIN [Concomitant]
  9. KLONOPIN [Concomitant]
  10. TOPAMAX [Concomitant]
  11. RISPERDAL [Concomitant]
  12. TEMAZEPAM [Concomitant]
  13. RANITIDINE [Concomitant]

REACTIONS (7)
  - ANXIETY [None]
  - BORDERLINE PERSONALITY DISORDER [None]
  - DEPRESSION [None]
  - HIATUS HERNIA [None]
  - INTERVERTEBRAL DISC PROTRUSION [None]
  - MANIA [None]
  - SUICIDAL IDEATION [None]
